FAERS Safety Report 14602833 (Version 1)
Quarter: 2018Q1

REPORT INFORMATION
  Report Type: Spontaneous
  Country: US (occurrence: US)
  Receive Date: 20180306
  Receipt Date: 20180306
  Transmission Date: 20180509
  Serious: No
  Sender: FDA-Public Use
  Company Number: US-BAYER-2018-040883

PATIENT
  Age: 68 Year
  Sex: Male
  Weight: 97.96 kg

DRUGS (5)
  1. MIRALAX [Suspect]
     Active Substance: POLYETHYLENE GLYCOL 3350
     Indication: PREMEDICATION
     Dosage: UNK
     Route: 048
     Dates: start: 20180219
  2. LEVBID [Concomitant]
     Active Substance: HYOSCYAMINE SULFATE
     Dosage: UNK
  3. VICODIN [Concomitant]
     Active Substance: ACETAMINOPHEN\HYDROCODONE BITARTRATE
     Dosage: UNK
  4. VALIUM [Concomitant]
     Active Substance: DIAZEPAM
     Dosage: UNK
  5. MIRALAX [Suspect]
     Active Substance: POLYETHYLENE GLYCOL 3350
     Indication: CONSTIPATION PROPHYLAXIS
     Dosage: 0.5 DF, UNK
     Route: 048
     Dates: start: 20180219, end: 20180220

REACTIONS (4)
  - Product use issue [Unknown]
  - Irritable bowel syndrome [Not Recovered/Not Resolved]
  - Gastrointestinal disorder [Not Recovered/Not Resolved]
  - Product use in unapproved indication [Unknown]

NARRATIVE: CASE EVENT DATE: 20180219
